FAERS Safety Report 9344481 (Version 1)
Quarter: 2013Q2

REPORT INFORMATION
  Report Type: Spontaneous
  Country: AT (occurrence: AT)
  Receive Date: 20130612
  Receipt Date: 20130612
  Transmission Date: 20140414
  Serious: Yes (Hospitalization)
  Sender: FDA-Public Use
  Company Number: AT-BAXTER-2013BAX020886

PATIENT
  Age: 64 Year
  Sex: Male
  Weight: 71 kg

DRUGS (3)
  1. EXTRANEAL - PERITONEALDIALYSEL?SUNG [Suspect]
     Indication: NEPHROPATHY
     Route: 033
     Dates: start: 20121128
  2. PHYSIONEAL 40 GLUCOSE 1,36% W/V/13,6 MG/ML CLEAR-FLEX - PERITONEALDIAL [Suspect]
     Indication: NEPHROPATHY
     Route: 033
     Dates: start: 20121128
  3. PHYSIONEAL 40 GLUCOSE 2,27% W/V/22,7 MG/ML CLEAR-FLEX - PERITONEALDIAL [Suspect]
     Indication: NEPHROPATHY
     Route: 033
     Dates: start: 20121128

REACTIONS (3)
  - Peritonitis bacterial [Recovered/Resolved]
  - Catheter site infection [Recovered/Resolved]
  - Rhinitis [Recovered/Resolved]
